FAERS Safety Report 5042001-9 (Version None)
Quarter: 2006Q2

REPORT INFORMATION
  Report Type: 
  Country: None (occurrence: None)
  Receive Date: 20060627
  Receipt Date: 20060616
  Transmission Date: 20061013
  Serious: Yes (Hospitalization)
  Sender: FDA-Public Use
  Company Number: KADN20060005

PATIENT
  Age: 91 Year
  Sex: Female

DRUGS (1)
  1. KADIAN [Suspect]
     Indication: ARTHRALGIA
     Dosage: 30-40 MG BID PO
     Route: 048
     Dates: start: 20051209, end: 20051201

REACTIONS (3)
  - DISORIENTATION [None]
  - FALL [None]
  - MENTAL DISORDER [None]
